FAERS Safety Report 17142694 (Version 1)
Quarter: 2019Q4

REPORT INFORMATION
  Report Type: Spontaneous
  Country: CA (occurrence: CA)
  Receive Date: 20191211
  Receipt Date: 20191211
  Transmission Date: 20200122
  Serious: Yes (Death)
  Sender: FDA-Public Use
  Company Number: CA-PFIZER INC-2019534539

PATIENT
  Age: 26 Year
  Sex: Female
  Weight: 36.28 kg

DRUGS (7)
  1. LOSEC [Concomitant]
     Active Substance: OMEPRAZOLE
     Dosage: UNK
  2. FRISIUM [Concomitant]
     Active Substance: CLOBAZAM
     Dosage: UNK
  3. NEURONTIN [Concomitant]
     Active Substance: GABAPENTIN
     Dosage: UNK
  4. COLACE [Concomitant]
     Active Substance: DOCUSATE SODIUM
     Dosage: UNK
  5. DILANTIN [Concomitant]
     Active Substance: PHENYTOIN
     Dosage: UNK
  6. TOPAMAX [Concomitant]
     Active Substance: TOPIRAMATE
     Dosage: UNK
  7. PROPOFOL. [Suspect]
     Active Substance: PROPOFOL
     Dosage: UNK
     Route: 042

REACTIONS (1)
  - Cardiac disorder [Fatal]
